FAERS Safety Report 6057759-X (Version None)
Quarter: 2009Q1

REPORT INFORMATION
  Report Type: 
  Country: None (occurrence: None)
  Receive Date: 20090129
  Receipt Date: 20090116
  Transmission Date: 20090719
  Serious: Yes (Hospitalization, Disabling)
  Sender: FDA-Public Use
  Company Number: PHEH2009US00901

PATIENT
  Sex: Male

DRUGS (6)
  1. ZOMETA [Suspect]
     Dosage: 4 MG
     Dates: start: 20080603
  2. ZOMETA [Suspect]
     Dosage: 4 MG
     Dates: start: 20080806
  3. ZOMETA [Suspect]
     Dosage: 4 MG
     Dates: start: 20080826
  4. REVLIMID [Concomitant]
     Indication: MULTIPLE MYELOMA
     Dosage: 25 MG, QD
     Dates: start: 20080506, end: 20081006
  5. DEXAMETHASONE [Concomitant]
     Indication: MULTIPLE MYELOMA
     Dosage: UNK
     Dates: start: 20080506
  6. IBUPROFEN [Concomitant]
     Indication: BACK PAIN
     Dosage: 800 MG, TID
     Dates: end: 20080301

REACTIONS (4)
  - BLOOD STEM CELL HARVEST [None]
  - CHRONIC OBSTRUCTIVE PULMONARY DISEASE [None]
  - ENDOTRACHEAL INTUBATION [None]
  - OSTEONECROSIS [None]
